FAERS Safety Report 10232013 (Version 1)
Quarter: 2014Q2

REPORT INFORMATION
  Report Type: Spontaneous
  Country: US (occurrence: US)
  Receive Date: 20140612
  Receipt Date: 20140612
  Transmission Date: 20141212
  Serious: No
  Sender: FDA-Public Use
  Company Number: US-BIOGENIDEC-2014BI048679

PATIENT
  Age: 60 Year
  Sex: Female

DRUGS (11)
  1. TECFIDERA [Suspect]
     Indication: MULTIPLE SCLEROSIS
     Route: 048
     Dates: start: 20140206
  2. BACLOFEN [Concomitant]
  3. CARISOPRODOL [Concomitant]
  4. CITALOPRAM HYDROBROMIDE [Concomitant]
  5. DIAZEPAM [Concomitant]
  6. GABAPENTIN [Concomitant]
  7. LEVETIRACETAM ER [Concomitant]
  8. OMEPRAZOLE [Concomitant]
  9. SIMVASTATIN [Concomitant]
  10. SOLU-MEDROL [Concomitant]
  11. TRAMADOL HCL [Concomitant]

REACTIONS (1)
  - Gingival swelling [Unknown]
